FAERS Safety Report 20793945 (Version 4)
Quarter: 2024Q3

REPORT INFORMATION
  Report Type: Report from Study
  Country: US (occurrence: US)
  Receive Date: 20220506
  Receipt Date: 20240923
  Transmission Date: 20241016
  Serious: No
  Sender: ROCHE
  Company Number: US-ROCHE-3004637

PATIENT
  Age: 70 Year
  Sex: Female
  Weight: 58.1 kg

DRUGS (9)
  1. HERCEPTIN [Suspect]
     Active Substance: TRASTUZUMAB
     Indication: Uterine cancer
     Dosage: INFUSED 6 MG/KG EVERY 21 DAYS
     Route: 042
     Dates: start: 20240102
  2. HERCEPTIN [Suspect]
     Active Substance: TRASTUZUMAB
     Dosage: 17ML (357 MG TOTAL), DATE OF SERVICE: 10/JUN/2022
     Route: 042
     Dates: start: 20220426
  3. DOCUSATE SODIUM [Concomitant]
     Active Substance: DOCUSATE SODIUM
  4. COMPAZINE [Concomitant]
     Active Substance: PROCHLORPERAZINE MALEATE
  5. CRESTOR [Concomitant]
     Active Substance: ROSUVASTATIN CALCIUM
  6. VITAMIN C [Concomitant]
     Active Substance: ASCORBIC ACID
  7. ASPIRIN [Concomitant]
     Active Substance: ASPIRIN
  8. VITAMIN D3 [Concomitant]
     Active Substance: CHOLECALCIFEROL
  9. COLACE [Concomitant]
     Active Substance: DOCUSATE SODIUM

REACTIONS (2)
  - Off label use [Unknown]
  - No adverse event [Unknown]
